FAERS Safety Report 4738251-9 (Version None)
Quarter: 2005Q3

REPORT INFORMATION
  Report Type: 
  Country: None (occurrence: None)
  Receive Date: 20050809
  Receipt Date: 20050405
  Transmission Date: 20060218
  Serious: Yes (Other)
  Sender: FDA-Public Use
  Company Number: PHEH2005US03974

PATIENT
  Age: 32 Year
  Sex: Male
  Weight: 49 kg

DRUGS (6)
  1. DEFEROXAMINE [Suspect]
     Indication: BLOOD IRON INCREASED
     Dosage: 2 G, ONCE/SINGLE
  2. DEFEROXAMINE [Suspect]
     Dosage: 2500 MG, QD
     Route: 058
  3. DIPHENHYDRAMINE HCL [Concomitant]
     Indication: WHOLE BLOOD TRANSFUSION
     Dosage: 25 MG, QD
     Dates: start: 20040901, end: 20040905
  4. ACETAMINOPHEN [Concomitant]
     Indication: WHOLE BLOOD TRANSFUSION
     Dosage: 650 MG, QD
     Dates: start: 20040901, end: 20040901
  5. FOLIC ACID [Concomitant]
     Dosage: 1 MG, QD
  6. CALCIUM CARBONATE [Concomitant]
     Indication: WHOLE BLOOD TRANSFUSION
     Dosage: 1.5 G, QD
     Dates: start: 20040904, end: 20040905

REACTIONS (3)
  - LEUKOCYTOCLASTIC VASCULITIS [None]
  - PRURITUS [None]
  - URTICARIA [None]
